FAERS Safety Report 4918689-7 (Version None)
Quarter: 2006Q1

REPORT INFORMATION
  Report Type: 
  Country: None (occurrence: None)
  Receive Date: 20060216
  Receipt Date: 20060201
  Transmission Date: 20060701
  Serious: Yes (Life-Threatening)
  Sender: FDA-Public Use
  Company Number: 221961

PATIENT
  Age: 56 Year
  Sex: Female

DRUGS (2)
  1. AVASTIN [Suspect]
     Indication: OVARIAN CANCER
     Dosage: 10 MG/KG, INTRAVENOUS
     Route: 042
     Dates: start: 20050105
  2. CYCLOPHOSPHAMIDE [Suspect]
     Indication: OVARIAN CANCER
     Dosage: 50 MG, QD, ORAL
     Route: 048
     Dates: start: 20050105

REACTIONS (2)
  - DISEASE PROGRESSION [None]
  - LYMPHOPENIA [None]
